FAERS Safety Report 11217924 (Version 1)
Quarter: 2015Q2

REPORT INFORMATION
  Report Type: Spontaneous
  Country: CA (occurrence: CA)
  Receive Date: 20150625
  Receipt Date: 20150625
  Transmission Date: 20150821
  Serious: Yes (Life-Threatening, Hospitalization)
  Sender: FDA-Public Use
  Company Number: CA-TEVA-573408ACC

PATIENT
  Age: 71 Year
  Sex: Female

DRUGS (1)
  1. RAMIPRIL. [Suspect]
     Active Substance: RAMIPRIL
     Indication: HYPERTENSION
     Dosage: UNKNOWN FORM STRENGTH
     Route: 048

REACTIONS (2)
  - Endotracheal intubation [Recovered/Resolved]
  - Swollen tongue [Recovered/Resolved]
